FAERS Safety Report 14149781 (Version 1)
Quarter: 2017Q4

REPORT INFORMATION
  Report Type: Spontaneous
  Country: ES (occurrence: ES)
  Receive Date: 20171101
  Receipt Date: 20171101
  Transmission Date: 20180321
  Serious: Yes (Other)
  Sender: FDA-Public Use
  Company Number: ES-PFIZER INC-2017465748

PATIENT
  Age: 29 Year
  Sex: Female

DRUGS (1)
  1. LOETTE [Suspect]
     Active Substance: ETHINYL ESTRADIOL\LEVONORGESTREL
     Indication: CONTRACEPTION
     Dosage: UNK
     Route: 048
     Dates: start: 2017, end: 20170629

REACTIONS (2)
  - Coagulopathy [Recovered/Resolved]
  - Prothrombin time ratio [Recovered/Resolved]

NARRATIVE: CASE EVENT DATE: 20170629
